FAERS Safety Report 5476081-3 (Version None)
Quarter: 2007Q4

REPORT INFORMATION
  Report Type: 
  Country: None (occurrence: None)
  Receive Date: 20071003
  Receipt Date: 20070921
  Transmission Date: 20080405
  Serious: Yes (Hospitalization)
  Sender: FDA-Public Use
  Company Number: DK-ELI_LILLY_AND_COMPANY-DK200707002914

PATIENT
  Age: 50 Year
  Sex: Female

DRUGS (4)
  1. DULOXETINE HYDROCHLORIDE [Suspect]
     Indication: DEPRESSION
     Dosage: 60 MG, DAILY (1/D)
     Route: 048
     Dates: start: 20070531, end: 20070801
  2. VITAMIN B [Concomitant]
     Indication: ALCOHOLISM
     Dosage: UNK, UNKNOWN
     Route: 065
     Dates: start: 20070618
  3. ELTROXIN [Concomitant]
     Dosage: UNK, UNKNOWN
     Route: 065
  4. TAFIL [Concomitant]
     Indication: ANXIETY
     Dosage: UNK, UNKNOWN
     Route: 065

REACTIONS (2)
  - DEPRESSION [None]
  - DIARRHOEA [None]
